FAERS Safety Report 17303482 (Version 1)
Quarter: 2020Q1

REPORT INFORMATION
  Report Type: Spontaneous
  Country: DK (occurrence: DK)
  Receive Date: 20200122
  Receipt Date: 20200122
  Transmission Date: 20200409
  Serious: Yes (Other)
  Sender: FDA-Public Use
  Company Number: DK-ALLERGAN-2002497US

PATIENT
  Sex: Male

DRUGS (2)
  1. ESCITALOPRAM OXALATE - BP [Suspect]
     Active Substance: ESCITALOPRAM OXALATE
     Indication: POST-TRAUMATIC STRESS DISORDER
     Dosage: SWITCHING BETWEEN 10 MG DAILY AND 15 MG DAILY
     Route: 048
  2. ANTABUS [Concomitant]
     Active Substance: DISULFIRAM
     Indication: ALCOHOL ABUSE
     Route: 048
     Dates: start: 2014

REACTIONS (4)
  - Hepatitis [Unknown]
  - Product use in unapproved indication [Unknown]
  - Hepatic cirrhosis [Unknown]
  - Hepatic enzyme increased [Unknown]

NARRATIVE: CASE EVENT DATE: 2017
